FAERS Safety Report 24738687 (Version 1)
Quarter: 2024Q4

REPORT INFORMATION
  Report Type: Spontaneous
  Country: LT (occurrence: LT)
  Receive Date: 20241216
  Receipt Date: 20241216
  Transmission Date: 20250115
  Serious: Yes (Death)
  Sender: BIOVITRUM
  Company Number: LT-BIOVITRUM-2024-LT-015873

PATIENT
  Age: 58 Year

DRUGS (1)
  1. GAMIFANT [Suspect]
     Active Substance: EMAPALUMAB-LZSG
     Indication: Haemophagocytic lymphohistiocytosis
     Dosage: TWO TIMES IN A WEEK (BIW)

REACTIONS (2)
  - Organ failure [Fatal]
  - Infection [Fatal]
